FAERS Safety Report 18818761 (Version 1)
Quarter: 2021Q1

REPORT INFORMATION
  Report Type: Report from Study
  Country: ES (occurrence: ES)
  Receive Date: 20210201
  Receipt Date: 20210201
  Transmission Date: 20210419
  Serious: Yes (Death, Other)
  Sender: FDA-Public Use
  Company Number: ES-GLAXOSMITHKLINE-ES2021GSK018452

PATIENT
  Age: 18 Year
  Sex: Female

DRUGS (6)
  1. GANCICLOVIR. [Suspect]
     Active Substance: GANCICLOVIR
     Indication: EPSTEIN-BARR VIRUS INFECTION
     Dosage: UNK
  2. PREDNISONE. [Concomitant]
     Active Substance: PREDNISONE
     Indication: PRODUCT USED FOR UNKNOWN INDICATION
     Dosage: 0.5 MG/KG, 1D (5 DAYS AND 27 DAYS BEFORE 1ST AND 2ND INFUSION)
  3. ACYCLOVIR. [Suspect]
     Active Substance: ACYCLOVIR
     Indication: EPSTEIN-BARR VIRUS INFECTION
     Dosage: UNK
  4. FLUDARABINE [Concomitant]
     Active Substance: FLUDARABINE PHOSPHATE
     Indication: ALLOGENIC STEM CELL TRANSPLANTATION
     Dosage: 25 MG/M2
  5. CYCLOPHOSPHAMIDE. [Concomitant]
     Active Substance: CYCLOPHOSPHAMIDE
     Indication: ALLOGENIC STEM CELL TRANSPLANTATION
     Dosage: 30 MG/KG
  6. RITUXIMAB. [Suspect]
     Active Substance: RITUXIMAB
     Indication: EPSTEIN-BARR VIRUS INFECTION
     Dosage: UNK

REACTIONS (5)
  - Treatment failure [Unknown]
  - Nephropathy toxic [Unknown]
  - Chronic active Epstein-Barr virus infection [Fatal]
  - Disease progression [Fatal]
  - Haemophagocytic lymphohistiocytosis [Fatal]
